FAERS Safety Report 9842657 (Version 1)
Quarter: 2014Q1

REPORT INFORMATION
  Report Type: Report from Study
  Country: JP (occurrence: JP)
  Receive Date: 20140124
  Receipt Date: 20140124
  Transmission Date: 20141002
  Serious: Yes (Hospitalization)
  Sender: FDA-Public Use
  Company Number: JP-FRI-1000053039

PATIENT
  Age: 59 Year
  Sex: Male

DRUGS (1)
  1. ACLIDINIUM [Suspect]
     Indication: CHRONIC OBSTRUCTIVE PULMONARY DISEASE
     Dosage: 12 MCG
     Route: 055
     Dates: start: 20131116, end: 20140110

REACTIONS (1)
  - Device dislocation [Not Recovered/Not Resolved]
